FAERS Safety Report 11217958 (Version 2)
Quarter: 2015Q3

REPORT INFORMATION
  Report Type: Spontaneous
  Country: CN (occurrence: CN)
  Receive Date: 20150625
  Receipt Date: 20150714
  Transmission Date: 20151125
  Serious: Yes (Other)
  Sender: FDA-Public Use
  Company Number: CN-JNJFOC-20150618163

PATIENT
  Age: 66 Year
  Sex: Male

DRUGS (2)
  1. XARELTO [Suspect]
     Active Substance: RIVAROXABAN
     Indication: CORONARY ARTERY BYPASS
     Route: 048
     Dates: start: 20150521
  2. GLUCOBAY [Suspect]
     Active Substance: ACARBOSE
     Indication: DIABETES MELLITUS
     Route: 065
     Dates: start: 20150521

REACTIONS (4)
  - Sweat gland disorder [Unknown]
  - Off label use [Unknown]
  - Diabetes mellitus inadequate control [Unknown]
  - Asthenia [Unknown]

NARRATIVE: CASE EVENT DATE: 2015
